FAERS Safety Report 14964892 (Version 2)
Quarter: 2018Q2

REPORT INFORMATION
  Report Type: Report from Study
  Country: MX (occurrence: MX)
  Receive Date: 20180601
  Receipt Date: 20180606
  Transmission Date: 20180711
  Serious: Yes (Death, Hospitalization, Other)
  Sender: FDA-Public Use
  Company Number: PHHY2018MX013243

PATIENT
  Age: 92 Year
  Sex: Female

DRUGS (7)
  1. ESCITALOPRAM [Concomitant]
     Active Substance: ESCITALOPRAM OXALATE
     Indication: PRODUCT USED FOR UNKNOWN INDICATION
     Dosage: 0.5 DF, QD
     Route: 048
     Dates: start: 201709, end: 20180421
  2. CO-DIOVAN [Suspect]
     Active Substance: HYDROCHLOROTHIAZIDE\VALSARTAN
     Indication: HYPERTENSION
     Dosage: 0.5 DF (HYDROCHLOROTHIAZIDE 12.5 MG, VALSARTAN 320 MG), QD
     Route: 048
     Dates: end: 20180421
  3. LEVODOPA/CARBIDOPA [Concomitant]
     Active Substance: CARBIDOPA\LEVODOPA
     Indication: PARKINSON^S DISEASE
     Dosage: 2.5 DF, QD (STARTED MORE THAN 10 YEARS AGO)
     Route: 048
     Dates: end: 20180421
  4. RIVOTRIL [Concomitant]
     Active Substance: CLONAZEPAM
     Indication: SLEEP DISORDER
     Dosage: 0.5 DF, QD
     Route: 048
     Dates: end: 20180421
  5. OLANZAPINE. [Concomitant]
     Active Substance: OLANZAPINE
     Indication: DEMENTIA ALZHEIMER^S TYPE
     Dosage: 1 DF, QD
     Route: 048
     Dates: start: 201709, end: 20180421
  6. EUTEBROL [Concomitant]
     Indication: DEMENTIA ALZHEIMER^S TYPE
     Dosage: 1 DF, QD
     Route: 048
     Dates: end: 20180421
  7. SIFROL [Concomitant]
     Active Substance: PRAMIPEXOLE
     Indication: PARKINSON^S DISEASE
     Dosage: 0.5 DF, (EVERY 8 HOURS) (STARTED 7 YEARS AGO)
     Route: 048
     Dates: start: 201709, end: 20180421

REACTIONS (9)
  - Blood glucose increased [Unknown]
  - Arrhythmia [Unknown]
  - Wrong technique in product usage process [Recovered/Resolved]
  - Cerebral ischaemia [Fatal]
  - Pneumonia [Fatal]
  - Drug prescribing error [Recovered/Resolved]
  - Atrial fibrillation [Fatal]
  - Cerebral infarction [Fatal]
  - Respiratory failure [Fatal]

NARRATIVE: CASE EVENT DATE: 20180421
